FAERS Safety Report 7468662-2 (Version None)
Quarter: 2011Q2

REPORT INFORMATION
  Report Type: 
  Country: None (occurrence: None)
  Receive Date: 20110510
  Receipt Date: 20110430
  Transmission Date: 20111010
  Serious: Yes (Hospitalization)
  Sender: FDA-Public Use
  Company Number: US-BIOGENIDEC-2009BI026324

PATIENT
  Age: 66 Year
  Sex: Female

DRUGS (1)
  1. AVONEX [Suspect]
     Indication: MULTIPLE SCLEROSIS
     Route: 030
     Dates: start: 20050101

REACTIONS (5)
  - LUMBAR SPINAL STENOSIS [None]
  - BACK DISORDER [None]
  - SPONDYLOLISTHESIS [None]
  - DEVICE FAILURE [None]
  - POST PROCEDURAL COMPLICATION [None]
